FAERS Safety Report 9335007 (Version 1)
Quarter: 2013Q2

REPORT INFORMATION
  Report Type: Spontaneous
  Country: US (occurrence: US)
  Receive Date: 20130606
  Receipt Date: 20130606
  Transmission Date: 20140414
  Serious: No
  Sender: FDA-Public Use
  Company Number: US-AMGEN-USASP2013037101

PATIENT
  Sex: Female

DRUGS (1)
  1. PROLIA [Suspect]
     Indication: OSTEOPOROSIS POSTMENOPAUSAL
     Dosage: UNK
     Dates: start: 20130325

REACTIONS (6)
  - Abdominal discomfort [Unknown]
  - Sinusitis [Unknown]
  - Injection site pain [Unknown]
  - Back pain [Unknown]
  - Musculoskeletal pain [Unknown]
  - Rash [Unknown]
